FAERS Safety Report 5825193-0 (Version None)
Quarter: 2008Q3

REPORT INFORMATION
  Report Type: 
  Country: None (occurrence: None)
  Receive Date: 20080729
  Receipt Date: 20080721
  Transmission Date: 20090109
  Serious: Yes (Death, Hospitalization, Other)
  Sender: FDA-Public Use
  Company Number: PHHY2008FR15046

PATIENT
  Age: 63 Year
  Sex: Male

DRUGS (2)
  1. NEORAL [Suspect]
     Indication: RENAL TRANSPLANT
     Dosage: UNK
     Route: 048
     Dates: start: 19940101
  2. CELLCEPT [Suspect]
     Indication: RENAL TRANSPLANT
     Dosage: UNK
     Route: 048
     Dates: start: 19940101

REACTIONS (17)
  - ADRENAL NEOPLASM [None]
  - ANOREXIA [None]
  - APNOEA [None]
  - CHEST PAIN [None]
  - CHOLECYSTECTOMY [None]
  - COMA [None]
  - DYSPNOEA [None]
  - GENERAL PHYSICAL HEALTH DETERIORATION [None]
  - HEPATIC NEOPLASM MALIGNANT [None]
  - LUNG ADENOCARCINOMA [None]
  - LYMPHANGITIS [None]
  - METASTASES TO LIVER [None]
  - PANCREATITIS ACUTE [None]
  - PNEUMONIA [None]
  - PULMONARY EMBOLISM [None]
  - PULMONARY MASS [None]
  - TUMOUR MARKER INCREASED [None]
